FAERS Safety Report 23940414 (Version 1)
Quarter: 2024Q2

REPORT INFORMATION
  Report Type: Spontaneous
  Country: US (occurrence: US)
  Receive Date: 20240605
  Receipt Date: 20240605
  Transmission Date: 20240716
  Serious: Yes (Hospitalization)
  Sender: FDA-Public Use
  Company Number: US-AUROBINDO-AUR-APL-2024-026314

PATIENT
  Age: 33 Year
  Sex: Male

DRUGS (5)
  1. BORTEZOMIB [Suspect]
     Active Substance: BORTEZOMIB
     Indication: Glomerulonephritis proliferative
     Dosage: UNK
     Route: 065
  2. MYCOPHENOLIC ACID [Suspect]
     Active Substance: MYCOPHENOLIC ACID
     Indication: Glomerulonephritis membranoproliferative
     Dosage: UNK
     Route: 065
  3. PREDNISONE [Suspect]
     Active Substance: PREDNISONE
     Indication: Glomerulonephritis membranoproliferative
     Dosage: UNK
     Route: 065
  4. CYTOXAN [Suspect]
     Active Substance: CYCLOPHOSPHAMIDE
     Indication: Glomerulonephritis proliferative
     Dosage: THREE CYCLES
     Route: 065
  5. DARATUMUMAB [Suspect]
     Active Substance: DARATUMUMAB
     Indication: Glomerulonephritis proliferative
     Dosage: UNK
     Route: 065

REACTIONS (1)
  - Therapy non-responder [Unknown]
